FAERS Safety Report 17755111 (Version 1)
Quarter: 2020Q2

REPORT INFORMATION
  Report Type: Spontaneous
  Country: FR (occurrence: FR)
  Receive Date: 20200507
  Receipt Date: 20200507
  Transmission Date: 20200714
  Serious: Yes (Other)
  Sender: FDA-Public Use
  Company Number: FR-TEVA-2020-FR-1230839

PATIENT
  Age: 15 Year
  Sex: Female

DRUGS (2)
  1. AMOXICILLINE [Suspect]
     Active Substance: AMOXICILLIN
     Indication: INFECTION PROPHYLAXIS
     Route: 048
     Dates: start: 20190915, end: 20190921
  2. SOLUPRED [Concomitant]
     Indication: DENTAL OPERATION
     Dosage: 40 MG
     Route: 048
     Dates: start: 20190916, end: 20190918

REACTIONS (2)
  - Toxic skin eruption [Recovered/Resolved]
  - Type IV hypersensitivity reaction [Recovered/Resolved]

NARRATIVE: CASE EVENT DATE: 20190921
